FAERS Safety Report 8328473-2 (Version None)
Quarter: 2012Q2

REPORT INFORMATION
  Report Type: 
  Country: None (occurrence: None)
  Receive Date: 20120502
  Receipt Date: 20120502
  Transmission Date: 20120825
  Serious: Yes (Hospitalization)
  Sender: FDA-Public Use
  Company Number: None

PATIENT
  Age: 80 Year
  Sex: Female

DRUGS (2)
  1. TRAMADOL HCL [Suspect]
     Indication: BACK PAIN
     Dosage: |DOSAGETEXT: 50.0 MG||STRENGTH: 50 MG||FREQ: Q6H PRN||ROUTE: ORAL|
     Route: 048
     Dates: start: 20120412, end: 20120415
  2. ZONISAMIDE [Suspect]
     Indication: BACK PAIN
     Dosage: |DOSAGETEXT: 25 MG||STRENGTH: 25 MG||FREQ: DAILY||ROUTE: ORAL|
     Route: 048
     Dates: start: 20120315, end: 20120415

REACTIONS (6)
  - HEMIPARESIS [None]
  - VISUAL IMPAIRMENT [None]
  - TRANSIENT ISCHAEMIC ATTACK [None]
  - NECK PAIN [None]
  - EXPRESSIVE LANGUAGE DISORDER [None]
  - TREMOR [None]
